FAERS Safety Report 14392717 (Version 1)
Quarter: 2018Q1

REPORT INFORMATION
  Report Type: Spontaneous
  Country: IN (occurrence: IN)
  Receive Date: 20180116
  Receipt Date: 20180116
  Transmission Date: 20180509
  Serious: Yes (Other)
  Sender: FDA-Public Use
  Company Number: IN-GLENMARK PHARMACEUTICALS-2018GMK030723

PATIENT
  Age: 49 Year
  Sex: Female

DRUGS (2)
  1. LINEZOLID. [Suspect]
     Active Substance: LINEZOLID
     Indication: MYCOBACTERIUM ABSCESSUS INFECTION
     Dosage: UNK
     Route: 065
  2. CLARITHROMYCIN. [Concomitant]
     Active Substance: CLARITHROMYCIN
     Indication: MYCOBACTERIUM ABSCESSUS INFECTION
     Dosage: 500 MG, 12 HOURS
     Route: 048

REACTIONS (3)
  - White blood cell count decreased [Unknown]
  - Platelet count decreased [Unknown]
  - International normalised ratio abnormal [Unknown]
